FAERS Safety Report 6092143-4 (Version None)
Quarter: 2009Q1

REPORT INFORMATION
  Report Type: 
  Country: None (occurrence: None)
  Receive Date: 20090223
  Receipt Date: 20090223
  Transmission Date: 20090719
  Serious: Yes (Life-Threatening)
  Sender: FDA-Public Use
  Company Number: None

PATIENT
  Age: 43 Year
  Sex: Female
  Weight: 83.9154 kg

DRUGS (2)
  1. LEVAQUIN [Suspect]
     Indication: EAR INFECTION
     Dosage: 500 MG ONCE DAILY PO
     Route: 048
     Dates: start: 20090216, end: 20090216
  2. LEVAQUIN [Suspect]
     Indication: SINUSITIS BACTERIAL
     Dosage: 500 MG ONCE DAILY PO
     Route: 048
     Dates: start: 20090216, end: 20090216

REACTIONS (12)
  - ANXIETY [None]
  - CARDIAC DISORDER [None]
  - DYSPHAGIA [None]
  - DYSPNOEA [None]
  - FEELING JITTERY [None]
  - HEADACHE [None]
  - HEART RATE INCREASED [None]
  - INSOMNIA [None]
  - MUSCULAR WEAKNESS [None]
  - PAIN [None]
  - PAIN IN EXTREMITY [None]
  - PANIC REACTION [None]
